FAERS Safety Report 18477868 (Version 2)
Quarter: 2021Q1

REPORT INFORMATION
  Report Type: Report from Study
  Country: CN (occurrence: CN)
  Receive Date: 20201108
  Receipt Date: 20210306
  Transmission Date: 20210419
  Serious: Yes (Hospitalization)
  Sender: FDA-Public Use
  Company Number: CN-ASTRAZENECA-2020SF36680

PATIENT
  Age: 26343 Day
  Sex: Female

DRUGS (153)
  1. DURVALUMAB. [Suspect]
     Active Substance: DURVALUMAB
     Indication: TRANSITIONAL CELL CARCINOMA
     Route: 042
     Dates: start: 20200814, end: 20200814
  2. TROPISETRON [Concomitant]
     Active Substance: TROPISETRON
     Indication: VOMITING
     Dosage: 5.0MG ONCE/SINGLE ADMINISTRATION
     Route: 042
     Dates: start: 20200731, end: 20200731
  3. TROPISETRON [Concomitant]
     Active Substance: TROPISETRON
     Indication: VOMITING
     Dosage: 5.0MG ONCE/SINGLE ADMINISTRATION
     Route: 042
     Dates: start: 20200924, end: 20200924
  4. PANTOPRAZOLE SODIUM. [Concomitant]
     Active Substance: PANTOPRAZOLE SODIUM
     Indication: HYPERCHLORHYDRIA
     Dosage: 40.0MG ONCE/SINGLE ADMINISTRATION
     Route: 042
     Dates: start: 20200703, end: 20200703
  5. PANTOPRAZOLE SODIUM. [Concomitant]
     Active Substance: PANTOPRAZOLE SODIUM
     Indication: VOMITING
     Dosage: 40.0MG ONCE/SINGLE ADMINISTRATION
     Route: 042
     Dates: start: 20200710, end: 20200710
  6. PANTOPRAZOLE SODIUM. [Concomitant]
     Active Substance: PANTOPRAZOLE SODIUM
     Indication: VOMITING
     Dosage: 40.0MG ONCE/SINGLE ADMINISTRATION
     Route: 042
     Dates: start: 20200731, end: 20200731
  7. PANTOPRAZOLE SODIUM. [Concomitant]
     Active Substance: PANTOPRAZOLE SODIUM
     Indication: HYPERCHLORHYDRIA
     Dosage: 40.0MG ONCE/SINGLE ADMINISTRATION
     Route: 042
     Dates: start: 20200821, end: 20200821
  8. CIMETIDINE [Concomitant]
     Active Substance: CIMETIDINE
     Indication: HYPERCHLORHYDRIA
     Dosage: 400.0MG ONCE/SINGLE ADMINISTRATION
     Route: 050
     Dates: start: 20200821, end: 20200821
  9. PALONOSETRON. [Concomitant]
     Active Substance: PALONOSETRON HYDROCHLORIDE
     Indication: VOMITING
     Dosage: 0.25MG ONCE/SINGLE ADMINISTRATION
     Route: 042
     Dates: start: 20200703, end: 20200703
  10. DEXAMETHASONE. [Concomitant]
     Active Substance: DEXAMETHASONE
     Indication: PROPHYLAXIS
     Dosage: 5.0MG ONCE/SINGLE ADMINISTRATION
     Route: 050
     Dates: start: 20200731, end: 20200731
  11. RECOMBINANT HUMAN GRANULOCYTE STIMULATING FACTOR INJECTION [Concomitant]
     Indication: MYELOSUPPRESSION
     Route: 058
     Dates: start: 20200715, end: 20200715
  12. RECOMBINANT HUMAN GRANULOCYTE STIMULATING FACTOR INJECTION [Concomitant]
     Indication: LEUKOPENIA
     Route: 058
     Dates: start: 20200728, end: 20200728
  13. RECOMBINANT HUMAN GRANULOCYTE STIMULATING FACTOR INJECTION [Concomitant]
     Indication: MYELOSUPPRESSION
     Route: 058
     Dates: start: 20200802, end: 20200802
  14. RECOMBINANT HUMAN GRANULOCYTE STIMULATING FACTOR INJECTION [Concomitant]
     Indication: LEUKOPENIA
     Route: 058
     Dates: start: 20200817, end: 20200817
  15. RECOMBINANT HUMAN GRANULOCYTE STIMULATING FACTOR INJECTION [Concomitant]
     Indication: LEUKOPENIA
     Route: 058
     Dates: start: 20200828, end: 20200828
  16. CISPLATIN. [Suspect]
     Active Substance: CISPLATIN
     Indication: TRANSITIONAL CELL CARCINOMA
     Route: 042
     Dates: start: 20200704, end: 20200704
  17. GEMCITABINE. [Suspect]
     Active Substance: GEMCITABINE
     Indication: TRANSITIONAL CELL CARCINOMA
     Route: 042
     Dates: start: 20200710, end: 20200710
  18. TROPISETRON [Concomitant]
     Active Substance: TROPISETRON
     Indication: VOMITING
     Dosage: 5.0MG ONCE/SINGLE ADMINISTRATION
     Route: 042
     Dates: start: 20200703, end: 20200703
  19. TROPISETRON [Concomitant]
     Active Substance: TROPISETRON
     Indication: VOMITING
     Dosage: 5.0MG ONCE/SINGLE ADMINISTRATION
     Route: 042
     Dates: start: 20200814, end: 20200814
  20. CIMETIDINE [Concomitant]
     Active Substance: CIMETIDINE
     Indication: HYPERCHLORHYDRIA
     Dosage: 400.0MG ONCE/SINGLE ADMINISTRATION
     Route: 050
     Dates: start: 20200703, end: 20200703
  21. CIMETIDINE [Concomitant]
     Active Substance: CIMETIDINE
     Indication: HYPERCHLORHYDRIA
     Dosage: 400.0MG ONCE/SINGLE ADMINISTRATION
     Route: 050
     Dates: start: 20200731, end: 20200731
  22. CIMETIDINE [Concomitant]
     Active Substance: CIMETIDINE
     Indication: HYPERCHLORHYDRIA
     Dosage: 400.0MG ONCE/SINGLE ADMINISTRATION
     Route: 050
     Dates: start: 20200814, end: 20200814
  23. DIPHENHYDRAMINE. [Concomitant]
     Active Substance: DIPHENHYDRAMINE
     Indication: VOMITING
     Dosage: 40.0MG ONCE/SINGLE ADMINISTRATION
     Route: 030
     Dates: start: 20200731, end: 20200731
  24. DIPHENHYDRAMINE. [Concomitant]
     Active Substance: DIPHENHYDRAMINE
     Indication: VOMITING
     Dosage: 40.0MG ONCE/SINGLE ADMINISTRATION
     Route: 030
     Dates: start: 20200821, end: 20200821
  25. DEXAMETHASONE. [Concomitant]
     Active Substance: DEXAMETHASONE
     Indication: PROPHYLAXIS
     Dosage: 5.0MG ONCE/SINGLE ADMINISTRATION
     Route: 050
     Dates: start: 20200703, end: 20200703
  26. DEXAMETHASONE. [Concomitant]
     Active Substance: DEXAMETHASONE
     Indication: PROPHYLAXIS
     Dosage: 5.0MG ONCE/SINGLE ADMINISTRATION
     Route: 050
     Dates: start: 20200710, end: 20200710
  27. COMPOUND SODIUM CHLORIDE [Concomitant]
     Indication: FLUID OVERLOAD
     Dosage: 500.0ML ONCE/SINGLE ADMINISTRATION
     Route: 042
     Dates: start: 20200821, end: 20200821
  28. RECOMBINANT HUMAN GRANULOCYTE COLONY?STIMULATING FACTOR INJECTION [Concomitant]
     Indication: LEUKOPENIA
     Route: 058
     Dates: start: 20200712, end: 20200712
  29. RECOMBINANT HUMAN GRANULOCYTE STIMULATING FACTOR INJECTION [Concomitant]
     Indication: MYELOSUPPRESSION
     Route: 058
     Dates: start: 20200728, end: 20200728
  30. RECOMBINANT HUMAN GRANULOCYTE STIMULATING FACTOR INJECTION [Concomitant]
     Indication: LEUKOPENIA
     Route: 058
     Dates: start: 20200805, end: 20200805
  31. DIYU SHENGBAIPIAN [Concomitant]
     Indication: LEUKOPENIA
     Route: 048
     Dates: start: 20200712, end: 202012
  32. RECOMBINANT HUMAN THROMBOPOIETIN INJECTION [Concomitant]
     Indication: PLATELET COUNT DECREASED
     Dosage: 7500.00 U EVERY DAY
     Route: 058
     Dates: start: 20200715, end: 20200715
  33. RECOMBINANT HUMAN THROMBOPOIETIN INJECTION [Concomitant]
     Indication: MYELOSUPPRESSION
     Dosage: 7500.00 U EVERY DAY
     Route: 058
     Dates: start: 20200825, end: 20200825
  34. HEMP SEED PILL [Concomitant]
     Indication: CONSTIPATION
     Route: 048
     Dates: start: 20200817, end: 20200818
  35. RECOMBINANT HUMAN ERYTHROPOIETIN [Concomitant]
     Active Substance: ERYTHROPOIETIN
     Indication: ANAEMIA
     Route: 058
     Dates: start: 20200903, end: 20200903
  36. SODIUM CHLORIDE. [Concomitant]
     Active Substance: SODIUM CHLORIDE
     Indication: SUPPLEMENTATION THERAPY
     Dosage: 500.0ML ONCE/SINGLE ADMINISTRATION
     Route: 042
     Dates: start: 20200917, end: 20200917
  37. METOCLOPRAMIDE HYDROCHLORIDE. [Concomitant]
     Active Substance: METOCLOPRAMIDE HYDROCHLORIDE
     Indication: PROTOTHECOSIS
     Dosage: 10.0MG ONCE/SINGLE ADMINISTRATION
     Route: 030
     Dates: start: 20201016, end: 20201016
  38. CISPLATIN. [Suspect]
     Active Substance: CISPLATIN
     Indication: TRANSITIONAL CELL CARCINOMA
     Route: 042
     Dates: start: 20200724, end: 20200724
  39. CISPLATIN. [Suspect]
     Active Substance: CISPLATIN
     Indication: TRANSITIONAL CELL CARCINOMA
     Route: 042
     Dates: start: 20200814, end: 20200814
  40. PANTOPRAZOLE SODIUM. [Concomitant]
     Active Substance: PANTOPRAZOLE SODIUM
     Indication: VOMITING
     Dosage: 40.0MG ONCE/SINGLE ADMINISTRATION
     Route: 042
     Dates: start: 20200924, end: 20200924
  41. CIMETIDINE [Concomitant]
     Active Substance: CIMETIDINE
     Indication: HYPERCHLORHYDRIA
     Dosage: 400.0MG ONCE/SINGLE ADMINISTRATION
     Route: 050
     Dates: start: 20200724, end: 20200724
  42. CIMETIDINE [Concomitant]
     Active Substance: CIMETIDINE
     Indication: HYPERCHLORHYDRIA
     Dosage: 400.0MG ONCE/SINGLE ADMINISTRATION
     Route: 050
     Dates: start: 20200924, end: 20200924
  43. PALONOSETRON. [Concomitant]
     Active Substance: PALONOSETRON HYDROCHLORIDE
     Indication: VOMITING
     Dosage: 0.25MG ONCE/SINGLE ADMINISTRATION
     Route: 042
     Dates: start: 20200710, end: 20200710
  44. DEXAMETHASONE. [Concomitant]
     Active Substance: DEXAMETHASONE
     Indication: PROPHYLAXIS
     Dosage: 5.0MG ONCE/SINGLE ADMINISTRATION
     Route: 050
     Dates: start: 20200821, end: 20200821
  45. COMPOUND SODIUM CHLORIDE [Concomitant]
     Indication: FLUID OVERLOAD
     Dosage: 500.0ML ONCE/SINGLE ADMINISTRATION
     Route: 042
     Dates: start: 20200917, end: 20200917
  46. RECOMBINANT HUMAN GRANULOCYTE STIMULATING FACTOR INJECTION [Concomitant]
     Indication: MYELOSUPPRESSION
     Route: 058
     Dates: start: 20200824, end: 20200824
  47. RECOMBINANT HUMAN GRANULOCYTE STIMULATING FACTOR INJECTION [Concomitant]
     Indication: LEUKOPENIA
     Route: 058
     Dates: start: 20200903, end: 20200903
  48. RECOMBINANT HUMAN INTERLEUKIN?11 FOR INJECTION [Concomitant]
     Indication: PLATELET COUNT DECREASED
     Route: 058
     Dates: start: 20200712, end: 20200712
  49. RECOMBINANT HUMAN INTERLEUKIN?11 FOR INJECTION [Concomitant]
     Indication: PLATELET COUNT DECREASED
     Route: 058
     Dates: start: 20200716, end: 20200717
  50. RECOMBINANT HUMAN THROMBOPOIETIN INJECTION [Concomitant]
     Indication: PLATELET COUNT DECREASED
     Route: 058
     Dates: start: 20200713, end: 20200713
  51. RECOMBINANT HUMAN THROMBOPOIETIN INJECTION [Concomitant]
     Indication: MYELOSUPPRESSION
     Dosage: 7500.00 U EVERY DAY
     Route: 058
     Dates: start: 20200715, end: 20200715
  52. RECOMBINANT HUMAN THROMBOPOIETIN INJECTION [Concomitant]
     Indication: PLATELET COUNT DECREASED
     Dosage: 7500.00 U EVERY DAY
     Route: 058
     Dates: start: 20200806, end: 20200809
  53. POTASSIUM CHLORIDE. [Concomitant]
     Active Substance: POTASSIUM CHLORIDE
     Indication: MINERAL SUPPLEMENTATION
     Route: 048
     Dates: start: 20200903
  54. POTASSIUM CHLORIDE. [Concomitant]
     Active Substance: POTASSIUM CHLORIDE
     Indication: MINERAL SUPPLEMENTATION
     Route: 048
     Dates: start: 20201016, end: 20201016
  55. VITAMIN B6 [Concomitant]
     Active Substance: PYRIDOXINE HYDROCHLORIDE
     Indication: NUTRITIONAL SUPPLEMENTATION
     Route: 042
     Dates: start: 20201016, end: 20201016
  56. COMPOUND DIPHENOXYLATE TABLETS [Concomitant]
     Indication: DIARRHOEA
     Route: 048
     Dates: start: 20201016, end: 20201019
  57. CISPLATIN. [Suspect]
     Active Substance: CISPLATIN
     Indication: TRANSITIONAL CELL CARCINOMA
     Route: 042
     Dates: start: 20200917, end: 20200917
  58. GEMCITABINE. [Suspect]
     Active Substance: GEMCITABINE
     Indication: TRANSITIONAL CELL CARCINOMA
     Route: 042
     Dates: start: 20200821, end: 20200821
  59. TROPISETRON [Concomitant]
     Active Substance: TROPISETRON
     Indication: VOMITING
     Dosage: 5.0MG ONCE/SINGLE ADMINISTRATION
     Route: 042
     Dates: start: 20200821, end: 20200821
  60. PANTOPRAZOLE SODIUM. [Concomitant]
     Active Substance: PANTOPRAZOLE SODIUM
     Indication: VOMITING
     Dosage: 40.0MG ONCE/SINGLE ADMINISTRATION
     Route: 042
     Dates: start: 20200703, end: 20200703
  61. PANTOPRAZOLE SODIUM. [Concomitant]
     Active Substance: PANTOPRAZOLE SODIUM
     Indication: HYPERCHLORHYDRIA
     Dosage: 40.0MG ONCE/SINGLE ADMINISTRATION
     Route: 042
     Dates: start: 20200710, end: 20200710
  62. PANTOPRAZOLE SODIUM. [Concomitant]
     Active Substance: PANTOPRAZOLE SODIUM
     Indication: HYPERCHLORHYDRIA
     Dosage: 40.0MG ONCE/SINGLE ADMINISTRATION
     Route: 042
     Dates: start: 20200917, end: 20200917
  63. CIMETIDINE [Concomitant]
     Active Substance: CIMETIDINE
     Indication: HYPERCHLORHYDRIA
     Dosage: 400.0MG ONCE/SINGLE ADMINISTRATION
     Route: 050
     Dates: start: 20200917, end: 20200917
  64. DIPHENHYDRAMINE. [Concomitant]
     Active Substance: DIPHENHYDRAMINE
     Indication: VOMITING
     Dosage: 40.0MG ONCE/SINGLE ADMINISTRATION
     Route: 030
     Dates: start: 20200703, end: 20200703
  65. DIPHENHYDRAMINE. [Concomitant]
     Active Substance: DIPHENHYDRAMINE
     Indication: VOMITING
     Dosage: 40.0MG ONCE/SINGLE ADMINISTRATION
     Route: 030
     Dates: start: 20200924, end: 20200924
  66. DEXAMETHASONE. [Concomitant]
     Active Substance: DEXAMETHASONE
     Indication: PROPHYLAXIS
     Dosage: 5.0MG ONCE/SINGLE ADMINISTRATION
     Route: 050
     Dates: start: 20200814, end: 20200814
  67. RECOMBINANT HUMAN GRANULOCYTE STIMULATING FACTOR INJECTION [Concomitant]
     Indication: LEUKOPENIA
     Route: 058
     Dates: start: 20200802, end: 20200802
  68. RECOMBINANT HUMAN GRANULOCYTE STIMULATING FACTOR INJECTION [Concomitant]
     Indication: LEUKOPENIA
     Dosage: 300.0UG ONCE/SINGLE ADMINISTRATION
     Route: 058
     Dates: start: 20200930, end: 20200930
  69. RECOMBINANT HUMAN THROMBOPOIETIN INJECTION [Concomitant]
     Indication: MYELOSUPPRESSION
     Dosage: 7500.00 U EVERY DAY
     Route: 058
     Dates: start: 20200827, end: 20200828
  70. RECOMBINANT HUMAN ERYTHROPOIETIN [Concomitant]
     Active Substance: ERYTHROPOIETIN
     Indication: ANAEMIA
     Dosage: 10000.00 KIU QD
     Route: 058
     Dates: start: 20200905, end: 20200906
  71. POLYSACCHARIDEIRON COMPLEX [Concomitant]
     Indication: ANAEMIA
     Route: 048
     Dates: start: 20200903
  72. POTASSIUM CHLORIDE. [Concomitant]
     Active Substance: POTASSIUM CHLORIDE
     Indication: HYPOKALAEMIA
     Route: 048
     Dates: start: 20201016, end: 20201016
  73. FEI LI KE HE JI [Concomitant]
     Indication: COUGH
     Route: 048
     Dates: start: 20200921
  74. HOUER HUAN XIAO YAN KE LI [Concomitant]
     Indication: DIARRHOEA
     Route: 048
     Dates: start: 20201016, end: 20201020
  75. DURVALUMAB. [Suspect]
     Active Substance: DURVALUMAB
     Indication: TRANSITIONAL CELL CARCINOMA
     Route: 042
     Dates: start: 20200724, end: 20200724
  76. DURVALUMAB. [Suspect]
     Active Substance: DURVALUMAB
     Indication: TRANSITIONAL CELL CARCINOMA
     Route: 042
     Dates: start: 20200917, end: 20200917
  77. TREMELIMUMAB. [Suspect]
     Active Substance: TREMELIMUMAB
     Indication: TRANSITIONAL CELL CARCINOMA
     Route: 042
     Dates: start: 20200917, end: 20200917
  78. PANTOPRAZOLE SODIUM. [Concomitant]
     Active Substance: PANTOPRAZOLE SODIUM
     Indication: HYPERCHLORHYDRIA
     Dosage: 40.0MG ONCE/SINGLE ADMINISTRATION
     Route: 042
     Dates: start: 20200731, end: 20200731
  79. PANTOPRAZOLE SODIUM. [Concomitant]
     Active Substance: PANTOPRAZOLE SODIUM
     Indication: HYPERCHLORHYDRIA
     Dosage: 40.0MG ONCE/SINGLE ADMINISTRATION
     Route: 042
     Dates: start: 20200814, end: 20200814
  80. PALONOSETRON. [Concomitant]
     Active Substance: PALONOSETRON HYDROCHLORIDE
     Indication: VOMITING
     Dosage: 0.25MG ONCE/SINGLE ADMINISTRATION
     Route: 042
     Dates: start: 20200924, end: 20200924
  81. COMPOUND SODIUM CHLORIDE [Concomitant]
     Indication: FLUID OVERLOAD
     Dosage: 500.0ML ONCE/SINGLE ADMINISTRATION
     Route: 042
     Dates: start: 20200724, end: 20200724
  82. SODIUM CHLORIDE INJECTION [Concomitant]
     Active Substance: SODIUM CHLORIDE
     Indication: FLUID OVERLOAD
     Dosage: 500.0ML ONCE/SINGLE ADMINISTRATION
     Route: 042
     Dates: start: 20200724, end: 20200724
  83. RECOMBINANT HUMAN GRANULOCYTE STIMULATING FACTOR INJECTION [Concomitant]
     Indication: MYELOSUPPRESSION
     Route: 058
     Dates: start: 20200805, end: 20200805
  84. RECOMBINANT HUMAN GRANULOCYTE STIMULATING FACTOR INJECTION [Concomitant]
     Indication: MYELOSUPPRESSION
     Route: 058
     Dates: start: 20200817, end: 20200817
  85. SHENGXUEXIAOBANJIAO NANG [Concomitant]
     Indication: PLATELET COUNT DECREASED
     Route: 048
     Dates: start: 20200712, end: 202012
  86. RECOMBINANT HUMAN THROMBOPOIETIN INJECTION [Concomitant]
     Indication: MYELOSUPPRESSION
     Dosage: 7500.00 U EVERY DAY
     Route: 058
     Dates: start: 20200806, end: 20200809
  87. RECOMBINANT HUMAN THROMBOPOIETIN INJECTION [Concomitant]
     Indication: PLATELET COUNT DECREASED
     Dosage: 7500.00 U EVERY DAY
     Route: 058
     Dates: start: 20200827, end: 20200828
  88. POTASSIUM CHLORIDE. [Concomitant]
     Active Substance: POTASSIUM CHLORIDE
     Indication: ELECTROLYTE IMBALANCE
     Route: 048
     Dates: start: 20200903
  89. BAILING JIAO NANG [Concomitant]
     Indication: COUGH
     Route: 048
     Dates: start: 20200905
  90. AMLODIPINE MALEATE PILLS [Concomitant]
     Indication: BLOOD PRESSURE MEASUREMENT
     Route: 048
     Dates: start: 20200921
  91. VITAMIN C [Concomitant]
     Active Substance: ASCORBIC ACID
     Indication: NUTRITIONAL SUPPLEMENTATION
     Route: 042
     Dates: start: 20201016, end: 20201016
  92. LANSOPRAZOLE. [Concomitant]
     Active Substance: LANSOPRAZOLE
     Indication: HYPERCHLORHYDRIA
     Dosage: 60.0MG ONCE/SINGLE ADMINISTRATION
     Route: 042
     Dates: start: 20201016, end: 20201016
  93. COENZYME A [Concomitant]
     Active Substance: COENZYME A
     Indication: NUTRITIONAL SUPPLEMENTATION
     Route: 042
     Dates: start: 20201016, end: 20201016
  94. ORAL REHYDRATION SALTS POWDER [Concomitant]
     Indication: ELECTROLYTE IMBALANCE
     Route: 048
     Dates: start: 20201016, end: 20201020
  95. GEMCITABINE. [Suspect]
     Active Substance: GEMCITABINE
     Indication: TRANSITIONAL CELL CARCINOMA
     Route: 042
     Dates: start: 20200917, end: 20200917
  96. GEMCITABINE. [Suspect]
     Active Substance: GEMCITABINE
     Indication: TRANSITIONAL CELL CARCINOMA
     Route: 042
     Dates: start: 20200924, end: 20200924
  97. TREMELIMUMAB. [Suspect]
     Active Substance: TREMELIMUMAB
     Indication: TRANSITIONAL CELL CARCINOMA
     Route: 042
     Dates: start: 20200703, end: 20200703
  98. TROPISETRON [Concomitant]
     Active Substance: TROPISETRON
     Indication: VOMITING
     Dosage: 5.0MG ONCE/SINGLE ADMINISTRATION
     Route: 042
     Dates: start: 20200917, end: 20200917
  99. PANTOPRAZOLE SODIUM. [Concomitant]
     Active Substance: PANTOPRAZOLE SODIUM
     Indication: VOMITING
     Dosage: 40.0MG ONCE/SINGLE ADMINISTRATION
     Route: 042
     Dates: start: 20200814, end: 20200814
  100. PANTOPRAZOLE SODIUM. [Concomitant]
     Active Substance: PANTOPRAZOLE SODIUM
     Indication: VOMITING
     Dosage: 40.0MG ONCE/SINGLE ADMINISTRATION
     Route: 042
     Dates: start: 20200821, end: 20200821
  101. PANTOPRAZOLE SODIUM. [Concomitant]
     Active Substance: PANTOPRAZOLE SODIUM
     Indication: VOMITING
     Dosage: 40.0MG ONCE/SINGLE ADMINISTRATION
     Route: 042
     Dates: start: 20200917, end: 20200917
  102. PANTOPRAZOLE SODIUM. [Concomitant]
     Active Substance: PANTOPRAZOLE SODIUM
     Indication: HYPERCHLORHYDRIA
     Dosage: 40.0MG ONCE/SINGLE ADMINISTRATION
     Route: 042
     Dates: start: 20200924, end: 20200924
  103. PALONOSETRON. [Concomitant]
     Active Substance: PALONOSETRON HYDROCHLORIDE
     Indication: VOMITING
     Dosage: 0.25MG ONCE/SINGLE ADMINISTRATION
     Route: 042
     Dates: start: 20200814, end: 20200814
  104. DIPHENHYDRAMINE. [Concomitant]
     Active Substance: DIPHENHYDRAMINE
     Indication: VOMITING
     Dosage: 40.0MG ONCE/SINGLE ADMINISTRATION
     Route: 030
     Dates: start: 20200724, end: 20200724
  105. DIPHENHYDRAMINE. [Concomitant]
     Active Substance: DIPHENHYDRAMINE
     Indication: VOMITING
     Dosage: 40.0MG ONCE/SINGLE ADMINISTRATION
     Route: 030
     Dates: start: 20200814, end: 20200814
  106. DIPHENHYDRAMINE. [Concomitant]
     Active Substance: DIPHENHYDRAMINE
     Indication: VOMITING
     Dosage: 40.0MG ONCE/SINGLE ADMINISTRATION
     Route: 030
     Dates: start: 20200917, end: 20200917
  107. DEXAMETHASONE. [Concomitant]
     Active Substance: DEXAMETHASONE
     Indication: PROPHYLAXIS
     Dosage: 5.0MG ONCE/SINGLE ADMINISTRATION
     Route: 050
     Dates: start: 20200724, end: 20200724
  108. 5% GLUCOSE [Concomitant]
     Active Substance: DEXTROSE
     Indication: FLUID OVERLOAD
     Dosage: 500.0ML ONCE/SINGLE ADMINISTRATION
     Route: 042
     Dates: start: 20200924, end: 20200924
  109. 5% GLUCOSE [Concomitant]
     Active Substance: DEXTROSE
     Indication: FLUID OVERLOAD
     Dosage: 500.0ML ONCE/SINGLE ADMINISTRATION
     Route: 042
     Dates: start: 20200821, end: 20200821
  110. RECOMBINANT HUMAN GRANULOCYTE STIMULATING FACTOR INJECTION [Concomitant]
     Indication: LEUKOPENIA
     Route: 058
     Dates: start: 20200715, end: 20200715
  111. RECOMBINANT HUMAN GRANULOCYTE STIMULATING FACTOR INJECTION [Concomitant]
     Indication: MYELOSUPPRESSION
     Route: 058
     Dates: start: 20200828, end: 20200828
  112. RECOMBINANT HUMAN GRANULOCYTE STIMULATING FACTOR INJECTION [Concomitant]
     Indication: MYELOSUPPRESSION
     Dosage: 300.0UG ONCE/SINGLE ADMINISTRATION
     Route: 058
     Dates: start: 20200930, end: 20200930
  113. GEMCITABINE. [Suspect]
     Active Substance: GEMCITABINE
     Indication: TRANSITIONAL CELL CARCINOMA
     Route: 042
     Dates: start: 20200703, end: 20200704
  114. GEMCITABINE. [Suspect]
     Active Substance: GEMCITABINE
     Indication: TRANSITIONAL CELL CARCINOMA
     Route: 042
     Dates: start: 20200724, end: 20200724
  115. GEMCITABINE. [Suspect]
     Active Substance: GEMCITABINE
     Indication: TRANSITIONAL CELL CARCINOMA
     Route: 042
     Dates: start: 20200731, end: 20200731
  116. TREMELIMUMAB. [Suspect]
     Active Substance: TREMELIMUMAB
     Indication: TRANSITIONAL CELL CARCINOMA
     Route: 042
     Dates: start: 20200724, end: 20200724
  117. TREMELIMUMAB. [Suspect]
     Active Substance: TREMELIMUMAB
     Indication: TRANSITIONAL CELL CARCINOMA
     Route: 042
     Dates: start: 20200814, end: 20200814
  118. TROPISETRON [Concomitant]
     Active Substance: TROPISETRON
     Indication: VOMITING
     Dosage: 5.0MG ONCE/SINGLE ADMINISTRATION
     Route: 042
     Dates: start: 20200710, end: 20200710
  119. PANTOPRAZOLE SODIUM. [Concomitant]
     Active Substance: PANTOPRAZOLE SODIUM
     Indication: HYPERCHLORHYDRIA
     Dosage: 40.0MG ONCE/SINGLE ADMINISTRATION
     Route: 042
     Dates: start: 20200724, end: 20200724
  120. PALONOSETRON. [Concomitant]
     Active Substance: PALONOSETRON HYDROCHLORIDE
     Indication: VOMITING
     Dosage: 0.25MG ONCE/SINGLE ADMINISTRATION
     Route: 042
     Dates: start: 20200821, end: 20200821
  121. PALONOSETRON. [Concomitant]
     Active Substance: PALONOSETRON HYDROCHLORIDE
     Indication: VOMITING
     Dosage: 0.25MG ONCE/SINGLE ADMINISTRATION
     Route: 042
     Dates: start: 20200917, end: 20200917
  122. DEXAMETHASONE. [Concomitant]
     Active Substance: DEXAMETHASONE
     Indication: PROPHYLAXIS
     Dosage: 5.0MG ONCE/SINGLE ADMINISTRATION
     Route: 050
     Dates: start: 20200917, end: 20200917
  123. DEXAMETHASONE. [Concomitant]
     Active Substance: DEXAMETHASONE
     Indication: PROPHYLAXIS
     Dosage: 5.0MG ONCE/SINGLE ADMINISTRATION
     Route: 050
     Dates: start: 20200924, end: 20200924
  124. COMPOUND SODIUM CHLORIDE [Concomitant]
     Indication: FLUID OVERLOAD
     Dosage: 500.0ML ONCE/SINGLE ADMINISTRATION
     Route: 042
     Dates: start: 20200731, end: 20200731
  125. COMPOUND SODIUM CHLORIDE [Concomitant]
     Indication: FLUID OVERLOAD
     Dosage: 500.0ML ONCE/SINGLE ADMINISTRATION
     Route: 042
     Dates: start: 20200814, end: 20200814
  126. 5% GLUCOSE [Concomitant]
     Active Substance: DEXTROSE
     Indication: FLUID OVERLOAD
     Dosage: 500.0ML ONCE/SINGLE ADMINISTRATION
     Route: 042
     Dates: start: 20200731, end: 20200731
  127. RECOMBINANT HUMAN GRANULOCYTE STIMULATING FACTOR INJECTION [Concomitant]
     Indication: LEUKOPENIA
     Route: 058
     Dates: start: 20200824, end: 20200824
  128. RECOMBINANT HUMAN GRANULOCYTE STIMULATING FACTOR INJECTION [Concomitant]
     Indication: MYELOSUPPRESSION
     Route: 058
     Dates: start: 20200903, end: 20200903
  129. RECOMBINANT HUMAN THROMBOPOIETIN INJECTION [Concomitant]
     Indication: MYELOSUPPRESSION
     Route: 058
     Dates: start: 20200713, end: 20200713
  130. RECOMBINANT HUMAN THROMBOPOIETIN INJECTION [Concomitant]
     Indication: PLATELET COUNT DECREASED
     Dosage: 7500.00 U EVERY DAY
     Route: 058
     Dates: start: 20200825, end: 20200825
  131. RECOMBINANT HUMAN THROMBOPOIETIN INJECTION [Concomitant]
     Indication: MYELOSUPPRESSION
     Dosage: 1500.00 U ONCE/SINGLE ADMINISTRATION
     Route: 058
     Dates: start: 20200930, end: 20200930
  132. POTASSIUM CHLORIDE. [Concomitant]
     Active Substance: POTASSIUM CHLORIDE
     Indication: ELECTROLYTE IMBALANCE
     Route: 048
     Dates: start: 20201016, end: 20201016
  133. CEFDINIR DISPERSIBLE TABLETS [Concomitant]
     Indication: INFECTION
     Route: 048
     Dates: start: 20201016, end: 20201019
  134. BELLADONNA TABLETS [Concomitant]
     Indication: MUSCLE SPASMS
     Route: 048
     Dates: start: 20201016, end: 20201018
  135. FAT?SOLUBLE VITAMIN [Concomitant]
     Active Substance: VITAMINS
     Indication: NUTRITIONAL SUPPLEMENTATION
     Dosage: 1.00 BRANCH EVERY DAY
     Route: 042
     Dates: start: 20201016, end: 20201016
  136. GEMCITABINE. [Suspect]
     Active Substance: GEMCITABINE
     Indication: TRANSITIONAL CELL CARCINOMA
     Route: 042
     Dates: start: 20200814, end: 20200814
  137. DURVALUMAB. [Suspect]
     Active Substance: DURVALUMAB
     Indication: TRANSITIONAL CELL CARCINOMA
     Route: 042
     Dates: start: 20200703, end: 20200703
  138. TROPISETRON [Concomitant]
     Active Substance: TROPISETRON
     Indication: VOMITING
     Dosage: 5.0MG ONCE/SINGLE ADMINISTRATION
     Route: 042
     Dates: start: 20200724, end: 20200724
  139. PANTOPRAZOLE SODIUM. [Concomitant]
     Active Substance: PANTOPRAZOLE SODIUM
     Indication: VOMITING
     Dosage: 40.0MG ONCE/SINGLE ADMINISTRATION
     Route: 042
     Dates: start: 20200724, end: 20200724
  140. CIMETIDINE [Concomitant]
     Active Substance: CIMETIDINE
     Indication: HYPERCHLORHYDRIA
     Dosage: 400.0MG ONCE/SINGLE ADMINISTRATION
     Route: 050
     Dates: start: 20200710, end: 20200710
  141. PALONOSETRON. [Concomitant]
     Active Substance: PALONOSETRON HYDROCHLORIDE
     Indication: VOMITING
     Dosage: 0.25MG ONCE/SINGLE ADMINISTRATION
     Route: 042
     Dates: start: 20200724, end: 20200724
  142. PALONOSETRON. [Concomitant]
     Active Substance: PALONOSETRON HYDROCHLORIDE
     Indication: VOMITING
     Dosage: 0.25MG ONCE/SINGLE ADMINISTRATION
     Route: 042
     Dates: start: 20200731, end: 20200731
  143. DIPHENHYDRAMINE. [Concomitant]
     Active Substance: DIPHENHYDRAMINE
     Indication: VOMITING
     Dosage: 40.0MG ONCE/SINGLE ADMINISTRATION
     Route: 030
     Dates: start: 20200710, end: 20200710
  144. COMPOUND SODIUM CHLORIDE [Concomitant]
     Indication: FLUID OVERLOAD
     Dosage: 500.0ML ONCE/SINGLE ADMINISTRATION
     Route: 042
     Dates: start: 20200703, end: 20200703
  145. COMPOUND SODIUM CHLORIDE [Concomitant]
     Indication: FLUID OVERLOAD
     Dosage: 500.0ML ONCE/SINGLE ADMINISTRATION
     Route: 042
     Dates: start: 20200710, end: 20200710
  146. COMPOUND SODIUM CHLORIDE [Concomitant]
     Indication: FLUID OVERLOAD
     Dosage: 500.0ML ONCE/SINGLE ADMINISTRATION
     Route: 042
     Dates: start: 20200924, end: 20200924
  147. 5% GLUCOSE [Concomitant]
     Active Substance: DEXTROSE
     Indication: FLUID OVERLOAD
     Dosage: 500.0ML ONCE/SINGLE ADMINISTRATION
     Route: 042
     Dates: start: 20200710, end: 20200710
  148. RECOMBINANT HUMAN THROMBOPOIETIN INJECTION [Concomitant]
     Indication: PLATELET COUNT DECREASED
     Dosage: 1500.00 U ONCE/SINGLE ADMINISTRATION
     Route: 058
     Dates: start: 20200930, end: 20200930
  149. POTASSIUM CHLORIDE. [Concomitant]
     Active Substance: POTASSIUM CHLORIDE
     Indication: HYPOKALAEMIA
     Route: 048
     Dates: start: 20200903
  150. SU HUANG ZHI KE JIAO NANG [Concomitant]
     Indication: COUGH
     Route: 048
     Dates: start: 20200825, end: 20200920
  151. PANTOPRAZOLE SODIUM ENTERIC?COATED TABLETS [Concomitant]
     Indication: HYPERCHLORHYDRIA
     Route: 048
     Dates: start: 20201016, end: 20201020
  152. LEVOFLOXACIN MESYLATE INJECTION [Concomitant]
     Indication: INFECTION
     Dosage: 0.6G ONCE/SINGLE ADMINISTRATION
     Route: 042
     Dates: start: 20201016, end: 20201016
  153. TYPE B RH POSITIVE PLATELETS [Concomitant]
     Indication: COLITIS
     Dosage: 2.00 U ONCE/SINGLE ADMINISTRATION
     Route: 042
     Dates: start: 20201003, end: 20201003

REACTIONS (1)
  - Colitis [Recovering/Resolving]

NARRATIVE: CASE EVENT DATE: 20201016
